FAERS Safety Report 11531175 (Version 1)
Quarter: 2015Q3

REPORT INFORMATION
  Report Type: Spontaneous
  Country: IL (occurrence: IL)
  Receive Date: 20150921
  Receipt Date: 20150921
  Transmission Date: 20151125
  Serious: Yes (Other)
  Sender: FDA-Public Use
  Company Number: IL-FRESENIUS KABI-FK201504399

PATIENT
  Age: 96 Year
  Sex: Female

DRUGS (7)
  1. ISOTONIC SODIUM CHLORIDE 0.9% (MANUFACTURER UNKNOWN) [Suspect]
     Active Substance: SODIUM CHLORIDE
     Route: 042
  2. FERUM SULFATE [Concomitant]
  3. AMOXICILLIN/CLAVULANTE [Concomitant]
     Active Substance: AMOXICILLIN\CLAVULANATE POTASSIUM
     Indication: PNEUMONIA
  4. VITAMIN B12 [Concomitant]
     Active Substance: CYANOCOBALAMIN
  5. FUROSEMIDE. [Concomitant]
     Active Substance: FUROSEMIDE
  6. SIMVASTATIN. [Concomitant]
     Active Substance: SIMVASTATIN
  7. ISOTONIC SODIUM CHLORIDE 0.9% (MANUFACTURER U [Suspect]
     Active Substance: SODIUM CHLORIDE
     Indication: COLONIC PSEUDO-OBSTRUCTION
     Route: 042

REACTIONS (3)
  - Hypertension [Unknown]
  - Pulmonary oedema [None]
  - Dyspnoea [None]
